FAERS Safety Report 20409898 (Version 1)
Quarter: 2022Q1

REPORT INFORMATION
  Report Type: Spontaneous
  Country: US (occurrence: US)
  Receive Date: 20220201
  Receipt Date: 20220201
  Transmission Date: 20220423
  Serious: No
  Sender: FDA-Public Use
  Company Number: US-drreddys-SPO/USA/22/0146253

PATIENT
  Age: 17 Year
  Sex: Female

DRUGS (2)
  1. ZENATANE [Suspect]
     Active Substance: ISOTRETINOIN
     Indication: Product used for unknown indication
     Dosage: RMA ISSUE DATE: 29 SEPTEMBER 2021 12:00:00 AM, 21 OCTOBER 2021 12:00:00 AM, 23 DECEMBER 2021 02:11:2
  2. ZENATANE [Suspect]
     Active Substance: ISOTRETINOIN
     Dosage: RMA ISSUE DATE: 23 DECEMBER 2021 02:11:20 PM, 19 JANUARY 2022 07:37:28 PM

REACTIONS (4)
  - Dizziness [Unknown]
  - Blood triglycerides increased [Unknown]
  - Drug ineffective [Unknown]
  - Product quality issue [Unknown]
